FAERS Safety Report 4380499-X (Version None)
Quarter: 2004Q2

REPORT INFORMATION
  Report Type: 
  Country: None (occurrence: None)
  Receive Date: 20040618
  Receipt Date: 20040608
  Transmission Date: 20050107
  Serious: Yes (Hospitalization)
  Sender: FDA-Public Use
  Company Number: US-JNJFOC-20040206159

PATIENT
  Sex: Female
  Weight: 58.97 kg

DRUGS (13)
  1. REMICADE [Suspect]
     Route: 042
  2. REMICADE [Suspect]
     Route: 042
  3. REMICADE [Suspect]
     Route: 042
  4. REMICADE [Suspect]
     Indication: RHEUMATOID ARTHRITIS
     Route: 042
  5. METHOTREXATE [Concomitant]
  6. MEDROL [Concomitant]
  7. PLAQUENIL [Concomitant]
  8. PRILOSEC [Concomitant]
  9. ZOLOFT [Concomitant]
  10. FOLIC ACID [Concomitant]
  11. PREMPHASE 14/14 [Concomitant]
  12. PREMPHASE 14/14 [Concomitant]
  13. VALTREX [Concomitant]

REACTIONS (4)
  - IMPLANT SITE INFECTION [None]
  - JOINT INJURY [None]
  - KNEE OPERATION [None]
  - STAPHYLOCOCCAL INFECTION [None]
